FAERS Safety Report 9269906 (Version 1)
Quarter: 2013Q2

REPORT INFORMATION
  Report Type: Report from Study
  Country: CA (occurrence: CA)
  Receive Date: 20130503
  Receipt Date: 20130503
  Transmission Date: 20140414
  Serious: Yes (Other)
  Sender: FDA-Public Use
  Company Number: CA-ABBOTT-13P-028-1079740-00

PATIENT
  Age: 52 Year
  Sex: Male
  Weight: 111.68 kg

DRUGS (1)
  1. HUMIRA [Suspect]
     Indication: PSORIATIC ARTHROPATHY
     Route: 058
     Dates: start: 20080129

REACTIONS (5)
  - Atelectasis [Recovering/Resolving]
  - Pneumonia [Recovering/Resolving]
  - Psoriatic arthropathy [Unknown]
  - Malaise [Recovering/Resolving]
  - Pleural effusion [Recovering/Resolving]
